FAERS Safety Report 7409860-3 (Version None)
Quarter: 2011Q2

REPORT INFORMATION
  Report Type: 
  Country: None (occurrence: None)
  Receive Date: 20110412
  Receipt Date: 20110412
  Transmission Date: 20111010
  Serious: Yes (Hospitalization)
  Sender: FDA-Public Use
  Company Number: US-ABBOTT-11P-163-0705182-00

PATIENT
  Age: 23 Year
  Sex: Male

DRUGS (5)
  1. VITAMIN D [Concomitant]
     Indication: VITAMIN SUPPLEMENTATION
  2. HUMIRA [Suspect]
     Indication: CROHN'S DISEASE
     Dosage: 4 INJECTIONS X1
     Route: 050
     Dates: start: 20101223, end: 20101223
  3. TRAMADOL HCL [Concomitant]
     Indication: PAIN
  4. ENDOCORT [Concomitant]
     Indication: CYSTIC FIBROSIS
  5. HUMIRA [Suspect]
     Route: 050
     Dates: start: 20110101

REACTIONS (6)
  - ULCER [None]
  - INJECTION SITE EXTRAVASATION [None]
  - COLON OPERATION [None]
  - SCAR [None]
  - INJECTION SITE PAIN [None]
  - ABDOMINAL PAIN [None]
